FAERS Safety Report 14441243 (Version 2)
Quarter: 2018Q2

REPORT INFORMATION
  Report Type: Spontaneous
  Country: FR (occurrence: FR)
  Receive Date: 20180125
  Receipt Date: 20180424
  Transmission Date: 20180711
  Serious: Yes (Death)
  Sender: FDA-Public Use
  Company Number: FR-TEVA-2018-FR-848738

PATIENT
  Age: 49 Year
  Sex: Male
  Weight: 52 kg

DRUGS (4)
  1. SOLU-MEDROL [Concomitant]
     Active Substance: METHYLPREDNISOLONE SODIUM SUCCINATE
     Indication: PREMEDICATION
     Route: 042
     Dates: start: 20171208, end: 20171208
  2. PACLITAXEL. [Suspect]
     Active Substance: PACLITAXEL
     Indication: NEOPLASM MALIGNANT
     Route: 042
     Dates: start: 20171208
  3. ONDANSETRON KABI 2 MG/ML, SOLUTION INJECTABLE [Concomitant]
     Indication: PROPHYLAXIS OF NAUSEA AND VOMITING
     Route: 042
     Dates: start: 20171208, end: 20171208
  4. POLARAMINE 5 MG/1 ML, SOLUTION INJECTABLE [Concomitant]
     Indication: PREMEDICATION
     Dosage: INCONNUE
     Route: 042
     Dates: start: 20171208, end: 20171208

REACTIONS (2)
  - Type I hypersensitivity [Fatal]
  - Pruritus [Fatal]

NARRATIVE: CASE EVENT DATE: 20171208
